APPROVED DRUG PRODUCT: TICAGRELOR
Active Ingredient: TICAGRELOR
Strength: 90MG
Dosage Form/Route: TABLET;ORAL
Application: A208541 | Product #001 | TE Code: AB
Applicant: DR REDDYS LABORATORIES LTD
Approved: Oct 29, 2024 | RLD: No | RS: No | Type: RX